FAERS Safety Report 7690387-9 (Version None)
Quarter: 2011Q3

REPORT INFORMATION
  Report Type: 
  Country: None (occurrence: None)
  Receive Date: 20110817
  Receipt Date: 20110817
  Transmission Date: 20111222
  Serious: No
  Sender: FDA-Public Use
  Company Number: None

PATIENT
  Age: 68 Year
  Sex: Male

DRUGS (1)
  1. THE TOOTHPASTE USE DIS ARM + HAMMER COMPLETE CARE. [Suspect]

REACTIONS (5)
  - LIP PAIN [None]
  - SKIN EXFOLIATION [None]
  - LIP ULCERATION [None]
  - ORAL PAIN [None]
  - PAIN OF SKIN [None]
